FAERS Safety Report 6962182-7 (Version None)
Quarter: 2010Q3

REPORT INFORMATION
  Report Type: 
  Country: None (occurrence: None)
  Receive Date: 20100902
  Receipt Date: 20100819
  Transmission Date: 20110219
  Serious: Yes (Other)
  Sender: FDA-Public Use
  Company Number: JP-JNJFOC-20100807392

PATIENT
  Age: 86 Year
  Sex: Male

DRUGS (4)
  1. FENTANYL CITRATE [Suspect]
     Indication: PAIN
     Dosage: 0.2-0.4 ML PER TIME
     Route: 042
  2. FENTANYL CITRATE [Suspect]
     Dosage: 0.1-0.4 ML/HR
     Route: 042
  3. CODEINE SULFATE [Suspect]
     Indication: PAIN
     Route: 048
  4. MORPHINE [Suspect]
     Indication: PAIN
     Dosage: 0.3-0.5 MG
     Route: 065

REACTIONS (2)
  - DELIRIUM [None]
  - PAIN [None]
